FAERS Safety Report 6075891-1 (Version None)
Quarter: 2009Q1

REPORT INFORMATION
  Report Type: 
  Country: None (occurrence: None)
  Receive Date: 20090212
  Receipt Date: 20090206
  Transmission Date: 20090719
  Serious: Yes (Other)
  Sender: FDA-Public Use
  Company Number: BR-ASTRAZENECA-2009UW03746

PATIENT
  Age: 59 Year
  Sex: Female

DRUGS (1)
  1. SYMBICORT [Suspect]
     Indication: HYPERSENSITIVITY
     Dosage: 320/9
     Route: 055
     Dates: start: 20090101, end: 20090101

REACTIONS (5)
  - BURNING SENSATION [None]
  - COUGH [None]
  - DYSPNOEA [None]
  - PALPITATIONS [None]
  - THROAT IRRITATION [None]
